FAERS Safety Report 18911834 (Version 1)
Quarter: 2021Q1

REPORT INFORMATION
  Report Type: Report from Study
  Country: BE (occurrence: BE)
  Receive Date: 20210219
  Receipt Date: 20210219
  Transmission Date: 20210420
  Serious: Yes (Death)
  Sender: FDA-Public Use
  Company Number: BE-BIOVITRUM-2021BE1745

PATIENT
  Sex: Male

DRUGS (3)
  1. ANAKINRA [Suspect]
     Active Substance: ANAKINRA
     Indication: COVID-19
     Dates: start: 20201124, end: 20201201
  2. FRAXIPARINE [Suspect]
     Active Substance: NADROPARIN CALCIUM
     Indication: COVID-19
     Dates: start: 20201123, end: 20201204
  3. APROTININE [Suspect]
     Active Substance: APROTININ
     Indication: COVID-19
     Dates: start: 20201124, end: 20201127

REACTIONS (1)
  - Death [Fatal]

NARRATIVE: CASE EVENT DATE: 20201211
